FAERS Safety Report 4285247-X (Version None)
Quarter: 2004Q1

REPORT INFORMATION
  Report Type: 
  Country: None (occurrence: None)
  Receive Date: 20040204
  Receipt Date: 20040129
  Transmission Date: 20041129
  Serious: Yes (Hospitalization)
  Sender: FDA-Public Use
  Company Number: US-ROCHE-357727

PATIENT
  Age: 42 Year
  Sex: Male

DRUGS (2)
  1. FUZEON [Suspect]
     Indication: HIV INFECTION
     Route: 058
     Dates: start: 20030901
  2. ANTIRETROVIRALS [Concomitant]
     Indication: HIV INFECTION

REACTIONS (2)
  - INJECTION SITE REACTION [None]
  - PNEUMONIA [None]
